FAERS Safety Report 13528733 (Version 1)
Quarter: 2017Q2

REPORT INFORMATION
  Report Type: Spontaneous
  Country: US (occurrence: US)
  Receive Date: 20170509
  Receipt Date: 20170509
  Transmission Date: 20170830
  Serious: Yes (Other)
  Sender: FDA-Public Use
  Company Number: US-PFIZER INC-2017197077

PATIENT
  Sex: Female

DRUGS (1)
  1. XELJANZ [Suspect]
     Active Substance: TOFACITINIB CITRATE
     Dosage: 5 MG, UNK

REACTIONS (5)
  - Headache [Unknown]
  - Urinary tract infection [Unknown]
  - Squamous cell carcinoma [Unknown]
  - Migraine [Unknown]
  - Condition aggravated [Unknown]
